FAERS Safety Report 16532265 (Version 1)
Quarter: 2019Q3

REPORT INFORMATION
  Report Type: Spontaneous
  Country: US (occurrence: US)
  Receive Date: 20190705
  Receipt Date: 20190705
  Transmission Date: 20191004
  Serious: No
  Sender: FDA-Public Use
  Company Number: US-TEVA-2019-US-1069143

PATIENT
  Sex: Female

DRUGS (2)
  1. AVIANE [Suspect]
     Active Substance: ETHINYL ESTRADIOL\LEVONORGESTREL
     Indication: CONTRACEPTION
  2. AVIANE [Suspect]
     Active Substance: ETHINYL ESTRADIOL\LEVONORGESTREL
     Indication: MENSTRUAL DISORDER
     Dosage: DOSE STRENGTH: 0.10 MG/0.02 MG

REACTIONS (6)
  - Vaginal haemorrhage [Unknown]
  - Emotional disorder [Unknown]
  - Crying [Unknown]
  - Mood swings [Unknown]
  - Product quality issue [Unknown]
  - Product use in unapproved indication [Unknown]
